FAERS Safety Report 8306945-4 (Version None)
Quarter: 2012Q2

REPORT INFORMATION
  Report Type: 
  Country: None (occurrence: None)
  Receive Date: 20120420
  Receipt Date: 20120411
  Transmission Date: 20120825
  Serious: No
  Sender: FDA-Public Use
  Company Number: 2012SP019493

PATIENT
  Age: 19 Year
  Sex: Male

DRUGS (4)
  1. SAPHRIS [Suspect]
     Indication: AFFECTIVE DISORDER
     Dosage: 5 MG; QD, SL
     Route: 060
  2. SAPHRIS [Suspect]
     Indication: DISABILITY
     Dosage: 5 MG; QD, SL
     Route: 060
  3. RISPERIDONE [Concomitant]
  4. PROZAC [Concomitant]

REACTIONS (2)
  - OFF LABEL USE [None]
  - RASH [None]
